FAERS Safety Report 22911919 (Version 5)
Quarter: 2024Q3

REPORT INFORMATION
  Report Type: Spontaneous
  Country: US (occurrence: US)
  Receive Date: 20230906
  Receipt Date: 20240820
  Transmission Date: 20241017
  Serious: Yes (Hospitalization)
  Sender: PFIZER
  Company Number: US-PFIZER INC-202300291199

PATIENT
  Age: 6 Year
  Sex: Male

DRUGS (2)
  1. OXBRYTA [Suspect]
     Active Substance: VOXELOTOR
     Dosage: 300MG/3 TABLETS FOR ORAL SUSPENSION ONCE DAILY
     Route: 048
     Dates: start: 20230722
  2. OXBRYTA [Suspect]
     Active Substance: VOXELOTOR
     Dosage: 300MG, 3 TABLETS ONCE DAILY
     Route: 048
     Dates: start: 2023

REACTIONS (5)
  - Illness [Not Recovered/Not Resolved]
  - Wrong technique in product usage process [Unknown]
  - Abdominal pain upper [Unknown]
  - Viral infection [Unknown]
  - Oropharyngeal pain [Unknown]
